FAERS Safety Report 5753113-6 (Version None)
Quarter: 2008Q2

REPORT INFORMATION
  Report Type: 
  Country: None (occurrence: None)
  Receive Date: 20080530
  Receipt Date: 20060921
  Transmission Date: 20081010
  Serious: No
  Sender: FDA-Public Use
  Company Number: DE-BAYER-200611082BVD

PATIENT
  Age: 42 Year
  Sex: Male
  Weight: 160 kg

DRUGS (1)
  1. MOXIFLOXACIN HCL [Suspect]
     Indication: PNEUMONIA ASPIRATION
     Route: 065
     Dates: start: 20060713, end: 20060724

REACTIONS (1)
  - RHABDOMYOLYSIS [None]
